FAERS Safety Report 15378383 (Version 1)
Quarter: 2018Q3

REPORT INFORMATION
  Report Type: Spontaneous
  Country: US (occurrence: US)
  Receive Date: 20180906
  Receipt Date: 20180906
  Transmission Date: 20181010
  Serious: No
  Sender: FDA-Public Use
  Company Number: None

PATIENT
  Age: 58 Year
  Sex: Female

DRUGS (19)
  1. OXYCODONE [Concomitant]
     Active Substance: OXYCODONE
  2. DIPHENHYDRAMINE. [Concomitant]
     Active Substance: DIPHENHYDRAMINE
  3. CLINDAMYCIN. [Concomitant]
     Active Substance: CLINDAMYCIN
  4. CLOBETASOL [Concomitant]
     Active Substance: CLOBETASOL
  5. FENTANYL. [Concomitant]
     Active Substance: FENTANYL
  6. LOMOTIL [Concomitant]
     Active Substance: ATROPINE SULFATE\DIPHENOXYLATE HYDROCHLORIDE
  7. SOOLANTRA [Concomitant]
     Active Substance: IVERMECTIN
  8. PROCTOSEL [Concomitant]
  9. DEXAMETHSONE [Concomitant]
  10. PROCHLORPERAZINE. [Concomitant]
     Active Substance: PROCHLORPERAZINE
  11. LOPERAMIDE [Concomitant]
     Active Substance: LOPERAMIDE
  12. RETIN [Concomitant]
  13. LONSURF [Suspect]
     Active Substance: TIPIRACIL HYDROCHLORIDE\TRIFLURIDINE
     Indication: COLON CANCER
     Route: 048
     Dates: start: 20180809
  14. ONDANSETRON [Concomitant]
     Active Substance: ONDANSETRON
  15. OMEPRAZOLE. [Concomitant]
     Active Substance: OMEPRAZOLE
  16. DOXYCYCLINE. [Concomitant]
     Active Substance: DOXYCYCLINE
  17. LORAZEPAM. [Concomitant]
     Active Substance: LORAZEPAM
  18. GABAPENTIN. [Concomitant]
     Active Substance: GABAPENTIN
  19. DIBUCAINE. [Concomitant]
     Active Substance: DIBUCAINE

REACTIONS (4)
  - Vomiting [None]
  - Fatigue [None]
  - Nausea [None]
  - Constipation [None]
